FAERS Safety Report 4635277-0 (Version None)
Quarter: 2005Q2

REPORT INFORMATION
  Report Type: 
  Country: None (occurrence: None)
  Receive Date: 20050411
  Receipt Date: 20050401
  Transmission Date: 20051028
  Serious: Yes (Death, Hospitalization, Other)
  Sender: FDA-Public Use
  Company Number: 2005044851

PATIENT
  Age: 92 Year
  Sex: Female

DRUGS (2)
  1. CELEBREX [Suspect]
     Indication: ARTHRITIS
  2. FLUVASTATIN (FLUVASTATIN) [Concomitant]

REACTIONS (2)
  - INTESTINAL PERFORATION [None]
  - MYOCARDIAL INFARCTION [None]
